FAERS Safety Report 4362116-8 (Version None)
Quarter: 2004Q2

REPORT INFORMATION
  Report Type: 
  Country: None (occurrence: None)
  Receive Date: 20040518
  Receipt Date: 20040513
  Transmission Date: 20050107
  Serious: Yes (Death, Life-Threatening, Other)
  Sender: FDA-Public Use
  Company Number: 200417878BWH

PATIENT
  Age: 76 Year

DRUGS (2)
  1. TRASYLOL [Suspect]
     Indication: AORTIC VALVE REPLACEMENT
     Dosage: INTRAVENOUS
     Route: 042
  2. TRASYLOL [Suspect]
     Indication: CORONARY ARTERY SURGERY
     Dosage: INTRAVENOUS
     Route: 042

REACTIONS (4)
  - ACIDOSIS [None]
  - HYPOPERFUSION [None]
  - RENAL FAILURE [None]
  - SHOCK [None]
